FAERS Safety Report 5846193-0 (Version None)
Quarter: 2008Q4

REPORT INFORMATION
  Report Type: 
  Country: None (occurrence: None)
  Receive Date: 20080813
  Receipt Date: 20080731
  Transmission Date: 20090506
  Serious: Yes (Hospitalization)
  Sender: FDA-Public Use
  Company Number: 2008-181517-NL

PATIENT
  Age: 40 Year
  Sex: Female

DRUGS (4)
  1. IMPLANON [Suspect]
     Indication: CONTRACEPTION
     Dosage: NI SUBDERMAL, UNKNOWN
     Route: 059
     Dates: start: 20070412
  2. CLINDAMYCIN HCL [Suspect]
     Indication: TOOTH ABSCESS
  3. ATENOLOL [Concomitant]
  4. FLUOXETINE [Concomitant]

REACTIONS (4)
  - ABDOMINAL PAIN LOWER [None]
  - OVARIAN CYST RUPTURED [None]
  - TOOTH ABSCESS [None]
  - URTICARIA [None]
